FAERS Safety Report 10590100 (Version 2)
Quarter: 2015Q1

REPORT INFORMATION
  Report Type: Spontaneous
  Country: JP (occurrence: JP)
  Receive Date: 20141118
  Receipt Date: 20150220
  Transmission Date: 20150720
  Serious: Yes (Hospitalization)
  Sender: FDA-Public Use
  Company Number: JP-ELI_LILLY_AND_COMPANY-JP201411004562

PATIENT
  Age: 77 Year
  Sex: Male
  Weight: 61 kg

DRUGS (13)
  1. ALOSITOL [Concomitant]
     Active Substance: ALLOPURINOL
     Dosage: 100 MG, EACH MORNING
     Route: 048
  2. GASTER [Concomitant]
     Active Substance: FAMOTIDINE
     Dosage: 20 MG, BID
     Route: 048
  3. NORVASC [Concomitant]
     Active Substance: AMLODIPINE BESYLATE
     Dosage: 2.5 MG, BID
     Route: 048
  4. REFLEX                             /01293201/ [Concomitant]
     Active Substance: MIRTAZAPINE
     Dosage: 30 MG, EACH EVENING
     Route: 048
  5. BUFFERIN                           /00009201/ [Concomitant]
     Dosage: 40.5 MG, EACH EVENING
     Route: 048
  6. MYSLEE [Concomitant]
     Active Substance: ZOLPIDEM TARTRATE
     Dosage: 5 MG, EACH EVENING
     Route: 048
  7. ROHYPNOL [Concomitant]
     Active Substance: FLUNITRAZEPAM
     Dosage: 1 MG, EACH EVENING
     Route: 048
  8. PLATOSIN [Suspect]
     Active Substance: CISPLATIN
     Indication: GALLBLADDER CANCER STAGE III
     Dosage: 42 MG, UNK
     Route: 042
     Dates: start: 20141031, end: 20141031
  9. URSO [Concomitant]
     Active Substance: URSODIOL
     Dosage: 100 MG, TID
     Route: 048
  10. LUNESTA [Concomitant]
     Active Substance: ESZOPICLONE
     Dosage: 2 MG, EACH EVENING
     Route: 048
  11. CRESTOR [Concomitant]
     Active Substance: ROSUVASTATIN CALCIUM
     Dosage: 2.5 MG, EACH EVENING
     Route: 048
  12. GEMZAR [Suspect]
     Active Substance: GEMCITABINE HYDROCHLORIDE
     Indication: GALLBLADDER CANCER STAGE III
     Dosage: 1683 MG, UNK
     Route: 042
     Dates: start: 20141031, end: 20141031
  13. MAINTATE [Concomitant]
     Active Substance: BISOPROLOL FUMARATE
     Dosage: 2.5 MG, EACH MORNING
     Route: 048

REACTIONS (1)
  - Pancreatitis acute [Recovering/Resolving]

NARRATIVE: CASE EVENT DATE: 20141104
